FAERS Safety Report 10213552 (Version 1)
Quarter: 2014Q2

REPORT INFORMATION
  Report Type: Spontaneous
  Country: US (occurrence: None)
  Receive Date: 20140602
  Receipt Date: 20140602
  Transmission Date: 20141212
  Serious: No
  Sender: FDA-Public Use
  Company Number: None

PATIENT
  Age: 42 Year
  Sex: Female
  Weight: 76.2 kg

DRUGS (1)
  1. TOPIRAMATE 50 MG [Suspect]
     Indication: HEMIPLEGIC MIGRAINE
     Dosage: 1 PILL?TWICE DAILY?TAKEN BY MOUTH
     Route: 048
     Dates: start: 20140327, end: 20140516

REACTIONS (2)
  - Glossitis [None]
  - Tongue discolouration [None]
